FAERS Safety Report 17670463 (Version 2)
Quarter: 2020Q2

REPORT INFORMATION
  Report Type: Spontaneous
  Country: FR (occurrence: FR)
  Receive Date: 20200415
  Receipt Date: 20200423
  Transmission Date: 20200713
  Serious: Yes (Other)
  Sender: FDA-Public Use
  Company Number: NVSC2020FR099925

PATIENT
  Age: 68 Year
  Sex: Male
  Weight: 80.5 kg

DRUGS (7)
  1. MALOCIDE [Concomitant]
     Indication: TOXOPLASMOSIS
     Dosage: 50 MG, QD
     Route: 048
     Dates: start: 20190522, end: 20190607
  2. SANDIMMUN [Suspect]
     Active Substance: CYCLOSPORINE
     Indication: PROPHYLAXIS AGAINST TRANSPLANT REJECTION
     Dosage: 120 MG, QD
     Route: 042
     Dates: start: 20190424, end: 20190522
  3. ACICLOVIR [Suspect]
     Active Substance: ACYCLOVIR
     Indication: ORAL HERPES
     Dosage: 700 MG, Q8H
     Route: 042
     Dates: start: 20190514, end: 20190522
  4. AMOXICILLIN. [Suspect]
     Active Substance: AMOXICILLIN
     Indication: ANTIBIOTIC THERAPY
     Dosage: 2 G, Q12H
     Route: 048
     Dates: start: 20190517, end: 20190602
  5. CELLCEPT [Concomitant]
     Active Substance: MYCOPHENOLATE MOFETIL\MYCOPHENOLATE MOFETIL HYDROCHLORIDE
     Indication: PROPHYLAXIS AGAINST TRANSPLANT REJECTION
     Dosage: 1000 MG, QD
     Route: 041
     Dates: start: 20190424, end: 20190522
  6. ADIAZINE [Concomitant]
     Active Substance: SULFADIAZINE
     Indication: TOXOPLASMOSIS
     Dosage: 8 G, QD
     Route: 048
     Dates: start: 20190522, end: 20190607
  7. TENOFOVIR DISOPROXIL [Concomitant]
     Active Substance: TENOFOVIR DISOPROXIL
     Indication: CHRONIC HEPATITIS B
     Dosage: 245 MG, QD
     Route: 048
     Dates: start: 20190421, end: 20190522

REACTIONS (1)
  - Renal failure [Recovered/Resolved]

NARRATIVE: CASE EVENT DATE: 201905
